FAERS Safety Report 10063407 (Version 1)
Quarter: 2014Q2

REPORT INFORMATION
  Report Type: Spontaneous
  Country: FR (occurrence: FR)
  Receive Date: 20140407
  Receipt Date: 20140407
  Transmission Date: 20141212
  Serious: Yes (Hospitalization, Other)
  Sender: FDA-Public Use
  Company Number: FR-PFIZER INC-2014093574

PATIENT
  Age: 72 Year
  Sex: Female

DRUGS (8)
  1. XANAX [Suspect]
     Dosage: 0.50 MG, 3X/DAY
     Route: 048
     Dates: end: 201402
  2. RISPERDAL [Suspect]
     Dosage: 0.5 MG, 1X/DAY
     Route: 048
     Dates: end: 201402
  3. TAHOR [Concomitant]
     Dosage: 40 MG, 2X/DAY
     Route: 048
  4. CORDARONE [Concomitant]
     Dosage: 200 MG, 1X/DAY
     Route: 048
  5. CARDENSIEL [Concomitant]
     Dosage: 10 MG, 1X/DAY
     Route: 048
  6. PARIET [Concomitant]
     Dosage: 20 MG, 1X/DAY
     Route: 048
  7. NAFTILUX [Concomitant]
     Dosage: 200 MG, 2X/DAY
     Route: 048
  8. VELMETIA [Concomitant]
     Dosage: 50 MG, 2X/DAY
     Route: 048

REACTIONS (13)
  - Disturbance in attention [Recovered/Resolved]
  - Disorientation [Recovered/Resolved]
  - Disorientation [Recovered/Resolved]
  - Fall [Recovered/Resolved]
  - Dizziness [Recovered/Resolved]
  - Electrocardiogram QT prolonged [Unknown]
  - Overdose [Recovered/Resolved]
  - Dysuria [Unknown]
  - Blood creatinine abnormal [Unknown]
  - Haemoglobin decreased [Unknown]
  - Somnolence [Unknown]
  - Abdominal distension [Unknown]
  - Tenderness [Unknown]
